FAERS Safety Report 19676527 (Version 2)
Quarter: 2025Q4

REPORT INFORMATION
  Report Type: Spontaneous
  Country: EU (occurrence: EU)
  Receive Date: 20210810
  Receipt Date: 20251016
  Transmission Date: 20260119
  Serious: Yes (Other)
  Sender: AUROBINDO
  Company Number: EU-AFSSAPS-RN20212172

PATIENT
  Age: 20 Year
  Sex: Female

DRUGS (3)
  1. METRONIDAZOLE [Suspect]
     Active Substance: METRONIDAZOLE
     Indication: Infection
     Dosage: 500 MILLIGRAM, 3 TIMES A DAY (3X / DAY)
     Route: 048
     Dates: start: 20210402, end: 20210409
  2. CEFEPIME [Suspect]
     Active Substance: CEFEPIME HYDROCHLORIDE
     Indication: Infection
     Dosage: 2 GRAM, 3 TIMES A DAY (EVERY HOUR)
     Route: 042
     Dates: start: 20210402, end: 20210407
  3. DAPTOMYCIN [Suspect]
     Active Substance: DAPTOMYCIN
     Indication: Infection
     Dosage: 700 MILLIGRAM PER A DAY
     Route: 042
     Dates: start: 20210402, end: 20210408

REACTIONS (1)
  - Hepatic cytolysis [Recovering/Resolving]

NARRATIVE: CASE EVENT DATE: 20210406
